FAERS Safety Report 8820663 (Version 2)
Quarter: 2012Q4

REPORT INFORMATION
  Report Type: 
  Country: FR (occurrence: FR)
  Receive Date: 20121002
  Receipt Date: 20121126
  Transmission Date: 20130627
  Serious: Yes (Life-Threatening, Hospitalization)
  Sender: FDA-Public Use
  Company Number: FR-JNJFOC-20120911041

PATIENT
  Age: 82 Year
  Sex: Male
  Weight: 82 kg

DRUGS (9)
  1. ZYTIGA [Suspect]
     Indication: PROSTATE CANCER
     Route: 048
  2. PREDNISONE [Suspect]
     Indication: PROSTATE CANCER METASTATIC
     Route: 048
  3. CORTICOSTEROID THERAPY (LONGTERM) [Concomitant]
     Indication: PROSTATE CANCER
  4. LOVENOX [Concomitant]
     Indication: CARDIAC DISORDER
     Route: 058
     Dates: start: 2010
  5. TRIATEC [Concomitant]
     Indication: CARDIAC DISORDER
     Route: 048
     Dates: start: 2002
  6. VASTEN [Concomitant]
     Indication: DYSLIPIDAEMIA
     Route: 048
     Dates: start: 2002
  7. DISTILBENE [Concomitant]
     Indication: PROSTATE CANCER
     Route: 048
     Dates: start: 20100428
  8. SECTRAL [Concomitant]
     Indication: CARDIAC DISORDER
     Route: 048
     Dates: start: 2002
  9. TAXOTERE [Concomitant]
     Indication: PROSTATE CANCER METASTATIC
     Route: 042
     Dates: start: 20120329

REACTIONS (4)
  - General physical health deterioration [Recovered/Resolved]
  - Diabetic hyperosmolar coma [Recovered/Resolved]
  - Lung disorder [Recovered/Resolved]
  - Disease progression [Not Recovered/Not Resolved]
